FAERS Safety Report 18318560 (Version 1)
Quarter: 2020Q3

REPORT INFORMATION
  Report Type: Spontaneous
  Country: PR (occurrence: US)
  Receive Date: 20200927
  Receipt Date: 20200927
  Transmission Date: 20201103
  Serious: Yes (Disabling, Other)
  Sender: FDA-Public Use
  Company Number: None

PATIENT
  Age: 18 Year
  Sex: Male
  Weight: 67.5 kg

DRUGS (1)
  1. RENFLEXIS [Suspect]
     Active Substance: INFLIXIMAB-ABDA
     Indication: CROHN^S DISEASE
     Dosage: ?          OTHER FREQUENCY:2, 4, 8 WEEKS;?
     Route: 042
     Dates: start: 20200709, end: 20200803

REACTIONS (4)
  - Back pain [None]
  - Skin disorder [None]
  - Otorrhoea [None]
  - Arthralgia [None]

NARRATIVE: CASE EVENT DATE: 20200812
